FAERS Safety Report 4941228-1 (Version None)
Quarter: 2006Q1

REPORT INFORMATION
  Report Type: 
  Country: None (occurrence: None)
  Receive Date: 20060310
  Receipt Date: 20060310
  Transmission Date: 20060701
  Serious: Yes (Hospitalization)
  Sender: FDA-Public Use
  Company Number: None

PATIENT
  Sex: Male
  Weight: 76.3 kg

DRUGS (5)
  1. CISPLATIN [Suspect]
     Indication: NON-SMALL CELL LUNG CANCER
     Dosage: 111 MG
     Dates: start: 20060227
  2. ZOCOR [Concomitant]
  3. PLAVIX [Concomitant]
  4. BLOCADRIN [Concomitant]
  5. LISINOPRIL [Concomitant]

REACTIONS (5)
  - ASTHENIA [None]
  - ATRIAL FIBRILLATION [None]
  - BLOOD CREATININE INCREASED [None]
  - DEHYDRATION [None]
  - HYPOTENSION [None]
